FAERS Safety Report 5412381-0 (Version None)
Quarter: 2007Q3

REPORT INFORMATION
  Report Type: 
  Country: None (occurrence: None)
  Receive Date: 20070810
  Receipt Date: 20070810
  Transmission Date: 20080115
  Serious: Yes (Hospitalization)
  Sender: FDA-Public Use
  Company Number: None

PATIENT
  Age: 49 Year
  Sex: Male

DRUGS (12)
  1. TOPIRAMATE [Suspect]
     Indication: BIPOLAR I DISORDER
     Dosage: 50MG BID PO
     Route: 048
     Dates: start: 20060127
  2. TOPIRAMATE [Suspect]
     Indication: MIGRAINE PROPHYLAXIS
     Dosage: 50MG BID PO
     Route: 048
     Dates: start: 20060127
  3. GABAPENTIN [Concomitant]
  4. ATENOLOL [Concomitant]
  5. HYDROCHLOROTHIAZIDE [Concomitant]
  6. IBUPROFEN [Concomitant]
  7. LORAZEPAM [Concomitant]
  8. PROCHLORPERAZINE [Concomitant]
  9. RIBOFLAVIN TAB [Concomitant]
  10. RISPERIDONE [Concomitant]
  11. TERAZOSIN HCL [Concomitant]
  12. ZALEPLON [Concomitant]

REACTIONS (9)
  - ABDOMINAL PAIN [None]
  - CONFUSIONAL STATE [None]
  - DIPLOPIA [None]
  - DISSOCIATIVE DISORDER [None]
  - FEELING ABNORMAL [None]
  - INCORRECT DOSE ADMINISTERED [None]
  - SUICIDAL BEHAVIOUR [None]
  - SUICIDAL IDEATION [None]
  - VISUAL DISTURBANCE [None]
